FAERS Safety Report 24393074 (Version 1)
Quarter: 2024Q4

REPORT INFORMATION
  Report Type: Spontaneous
  Country: US (occurrence: None)
  Receive Date: 20241003
  Receipt Date: 20241003
  Transmission Date: 20250115
  Serious: No
  Sender: Public
  Company Number: None

PATIENT
  Sex: Female

DRUGS (11)
  1. BOTOX [Suspect]
     Active Substance: ONABOTULINUMTOXINA
     Indication: Migraine without aura
     Dates: start: 20240405
  2. ACETAZOLAMID TAB 250MG [Concomitant]
  3. AMLODIPINE [Concomitant]
     Active Substance: AMLODIPINE BESYLATE
  4. BUPROPION [Concomitant]
     Active Substance: BUPROPION
  5. GABAPENTIN CAP 100MG [Concomitant]
  6. ILEVRO DRO 0.3% OP [Concomitant]
  7. LEVOTHYROXIN TAB 125MCG [Concomitant]
  8. LINZESS CAP145MCG [Concomitant]
  9. LOTEMAX SM GEL 0.38% [Concomitant]
  10. MONTELUKAST SODIUM [Concomitant]
     Active Substance: MONTELUKAST SODIUM
  11. OMEPRAZOLE [Concomitant]
     Active Substance: OMEPRAZOLE

REACTIONS (1)
  - Spinal operation [None]
